FAERS Safety Report 21966588 (Version 1)
Quarter: 2023Q1

REPORT INFORMATION
  Report Type: Report from Study
  Country: CA (occurrence: CA)
  Receive Date: 20230208
  Receipt Date: 20230208
  Transmission Date: 20230418
  Serious: Yes (Other)
  Sender: FDA-Public Use
  Company Number: None

PATIENT
  Age: 79 Year
  Sex: Female
  Weight: 90 kg

DRUGS (23)
  1. METHOTREXATE [Suspect]
     Active Substance: METHOTREXATE
     Indication: Product used for unknown indication
     Route: 065
  2. BRODALUMAB [Suspect]
     Active Substance: BRODALUMAB
     Indication: Psoriasis
     Route: 058
  3. ACETAMINOPHEN [Concomitant]
     Active Substance: ACETAMINOPHEN
  4. ASPIRIN [Concomitant]
     Active Substance: ASPIRIN
     Route: 065
  5. AMLODIPINE [Concomitant]
     Active Substance: AMLODIPINE BESYLATE
  6. BETAMETHASONE\CALCIPOTRIENE [Concomitant]
     Active Substance: BETAMETHASONE\CALCIPOTRIENE
  7. CALCIUM [Concomitant]
     Active Substance: CALCIUM
  8. COVID-19 VACCINE [Concomitant]
     Indication: COVID-19 immunisation
  9. DICLOFENAC [Concomitant]
     Active Substance: DICLOFENAC
  10. ERGOCALCIFEROL [Concomitant]
     Active Substance: ERGOCALCIFEROL
  11. CRISABOROLE [Concomitant]
     Active Substance: CRISABOROLE
     Dosage: TOPICAL
  12. FOLIC ACID [Concomitant]
     Active Substance: FOLIC ACID
  13. GABAPENTIN [Concomitant]
     Active Substance: GABAPENTIN
  14. GLICLAZIDE [Concomitant]
     Active Substance: GLICLAZIDE
  15. GLYBURIDE [Concomitant]
     Active Substance: GLYBURIDE
  16. IBUPROFEN [Concomitant]
     Active Substance: IBUPROFEN
  17. INFLUENZA VIRUS VACCINE [Concomitant]
     Active Substance: INFLUENZA VIRUS VACCINE
  18. EMPAGLIFLOZIN [Concomitant]
     Active Substance: EMPAGLIFLOZIN
     Dosage: EVERY 1 DAYS
  19. MAGNESIUM [Concomitant]
     Active Substance: MAGNESIUM
  20. OMEGA [Concomitant]
  21. DENOSUMAB [Concomitant]
     Active Substance: DENOSUMAB
     Dosage: PRE-FILLED SYRINGE PRESERVATIVE FREE
     Route: 058
  22. TOZINAMERAN [Concomitant]
     Active Substance: TOZINAMERAN
     Indication: COVID-19 immunisation
  23. ZINC [Concomitant]
     Active Substance: ZINC

REACTIONS (19)
  - Contusion [Not Recovered/Not Resolved]
  - Device issue [Unknown]
  - Diabetes mellitus [Not Recovered/Not Resolved]
  - Diarrhoea [Not Recovered/Not Resolved]
  - Eczema [Not Recovered/Not Resolved]
  - Fall [Unknown]
  - Gait disturbance [Not Recovered/Not Resolved]
  - Immunosuppression [Not Recovered/Not Resolved]
  - Injection site pain [Not Recovered/Not Resolved]
  - Intentional dose omission [Unknown]
  - Joint injury [Not Recovered/Not Resolved]
  - Limb injury [Not Recovered/Not Resolved]
  - Lumbar spinal stenosis [Not Recovered/Not Resolved]
  - Meralgia paraesthetica [Not Recovered/Not Resolved]
  - Product physical consistency issue [Unknown]
  - Psoriasis [Not Recovered/Not Resolved]
  - Skin haemorrhage [Not Recovered/Not Resolved]
  - Stomatitis [Not Recovered/Not Resolved]
  - Therapy cessation [Unknown]
